FAERS Safety Report 11746211 (Version 1)
Quarter: 2015Q4

REPORT INFORMATION
  Report Type: Spontaneous
  Country: US (occurrence: None)
  Receive Date: 20151116
  Receipt Date: 20151116
  Transmission Date: 20160304
  Serious: No
  Sender: FDA-Public Use
  Company Number: None

PATIENT
  Age: 91 Year
  Sex: Male
  Weight: 128.82 kg

DRUGS (11)
  1. ATENOLOL 100MG WALGREENS PHARMACY [Suspect]
     Active Substance: ATENOLOL
     Indication: HYPERTENSION
     Route: 048
  2. HYDROCHLOROTHIAZIDE. [Concomitant]
     Active Substance: HYDROCHLOROTHIAZIDE
  3. MELDFORMIN [Concomitant]
  4. PREVAGEN [Concomitant]
     Active Substance: DIETARY SUPPLEMENT
  5. DOCQLACE [Concomitant]
     Active Substance: DOCUSATE SODIUM
  6. CLONIDINE. [Concomitant]
     Active Substance: CLONIDINE
  7. ATORVASTATION [Concomitant]
  8. LORAZEPAM. [Concomitant]
     Active Substance: LORAZEPAM
  9. NIFEDIPINE. [Concomitant]
     Active Substance: NIFEDIPINE
  10. PIOGLITAZONE. [Concomitant]
     Active Substance: PIOGLITAZONE
  11. TAMSULOSIN [Concomitant]
     Active Substance: TAMSULOSIN

REACTIONS (1)
  - Drug dispensing error [None]

NARRATIVE: CASE EVENT DATE: 20151109
